FAERS Safety Report 8428676-2 (Version None)
Quarter: 2012Q2

REPORT INFORMATION
  Report Type: 
  Country: None (occurrence: None)
  Receive Date: 20120612
  Receipt Date: 20120606
  Transmission Date: 20120825
  Serious: Yes (Hospitalization)
  Sender: FDA-Public Use
  Company Number: US-AMGEN-USASP2011070085

PATIENT
  Sex: Female
  Weight: 2.66 kg

DRUGS (2)
  1. NEUPOGEN [Suspect]
     Dosage: 300 MUG, BID
     Route: 064
     Dates: start: 20111027
  2. ANTIBIOTICS [Concomitant]
     Route: 064

REACTIONS (4)
  - NEUTROPENIA [None]
  - MATERNAL DRUGS AFFECTING FOETUS [None]
  - INFECTION [None]
  - CAESAREAN SECTION [None]
